FAERS Safety Report 21333124 (Version 3)
Quarter: 2022Q4

REPORT INFORMATION
  Report Type: Spontaneous
  Country: US (occurrence: US)
  Receive Date: 20220914
  Receipt Date: 20221021
  Transmission Date: 20230113
  Serious: Yes (Death, Hospitalization)
  Sender: FDA-Public Use
  Company Number: US-JNJFOC-20220926052

PATIENT
  Age: 69 Year
  Sex: Female

DRUGS (1)
  1. OPSUMIT [Suspect]
     Active Substance: MACITENTAN
     Indication: Product used for unknown indication
     Dosage: LITTLE OVER ONE MONTH AGO
     Route: 048
     Dates: start: 20220811

REACTIONS (8)
  - Death [Fatal]
  - Hospitalisation [Unknown]
  - Haematemesis [Unknown]
  - Renal impairment [Unknown]
  - Haematuria [Unknown]
  - Haematochezia [Unknown]
  - Incoherent [Unknown]
  - Dyspnoea [Unknown]

NARRATIVE: CASE EVENT DATE: 20220910
